FAERS Safety Report 16745619 (Version 1)
Quarter: 2019Q3

REPORT INFORMATION
  Report Type: Report from Study
  Country: CN (occurrence: CN)
  Receive Date: 20190827
  Receipt Date: 20190827
  Transmission Date: 20191005
  Serious: Yes (Death)
  Sender: FDA-Public Use
  Company Number: CN-PFIZER INC-2019362615

PATIENT

DRUGS (4)
  1. METHOTREXATE. [Suspect]
     Active Substance: METHOTREXATE
     Indication: NATURAL KILLER-CELL LYMPHOBLASTIC LYMPHOMA
     Dosage: 3000 MG/M2, CYCLIC (CIV 6-HOUR, D1)
     Route: 042
  2. PEGASPARGASE [Suspect]
     Active Substance: PEGASPARGASE
     Indication: NATURAL KILLER-CELL LYMPHOBLASTIC LYMPHOMA
     Dosage: UNK, CYCLIC (2000 U/M2, D1)
     Route: 030
  3. CALCIUM FOLINATE [Suspect]
     Active Substance: LEUCOVORIN CALCIUM
     Indication: NATURAL KILLER-CELL LYMPHOBLASTIC LYMPHOMA
     Dosage: 30 MG, CYCLIC (IV, Q6H, UNTIL REACH SAFE SERUM MTX CONCENTRATION)
     Route: 042
  4. DEXAMETHASONE. [Suspect]
     Active Substance: DEXAMETHASONE
     Indication: NATURAL KILLER-CELL LYMPHOBLASTIC LYMPHOMA
     Dosage: 40 MG, DAILY (D1-4)
     Route: 041

REACTIONS (2)
  - Sepsis [Fatal]
  - Acute kidney injury [Fatal]
